FAERS Safety Report 5679276-9 (Version None)
Quarter: 2008Q1

REPORT INFORMATION
  Report Type: 
  Country: None (occurrence: None)
  Receive Date: 20080325
  Receipt Date: 20080314
  Transmission Date: 20080703
  Serious: Yes (Hospitalization)
  Sender: FDA-Public Use
  Company Number: US-BAYER-200714141BWH

PATIENT
  Age: 75 Year
  Sex: Female

DRUGS (16)
  1. NEXAVAR [Suspect]
     Indication: RENAL CANCER METASTATIC
     Dosage: TOTAL DAILY DOSE: 800 MG  UNIT DOSE: 200 MG
     Route: 048
     Dates: start: 20071016, end: 20071025
  2. NEXIUM [Concomitant]
     Dosage: TOTAL DAILY DOSE: 40 MG
     Route: 048
  3. COLACE [Concomitant]
     Dosage: TOTAL DAILY DOSE: 100 MG
     Route: 048
  4. AMITRIPTYLINE HCL [Concomitant]
     Indication: INSOMNIA
     Dosage: TOTAL DAILY DOSE: 75 MG
     Route: 048
  5. SIMVASTATIN [Concomitant]
     Dosage: TOTAL DAILY DOSE: 40 MG
     Route: 048
  6. MYSOLINE [Concomitant]
     Indication: TREMOR
     Dosage: TOTAL DAILY DOSE: 100 MG
     Route: 048
  7. AMBIEN [Concomitant]
     Indication: INSOMNIA
     Dosage: TOTAL DAILY DOSE: 10 MG
     Route: 048
  8. DARVOCET-N 100 [Concomitant]
     Indication: PAIN
     Route: 048
  9. ENTERIC ASPIRIN [Concomitant]
     Dosage: TOTAL DAILY DOSE: 81 MG
     Route: 048
  10. MULTI-VITAMIN [Concomitant]
     Route: 048
  11. ASCORBIC ACID [Concomitant]
     Dosage: TOTAL DAILY DOSE: 1000 MG
     Route: 048
  12. CALCIUM PLUS VITAMIN D [Concomitant]
     Dosage: TOTAL DAILY DOSE: 600 MG
     Route: 048
  13. METFORMIN [Concomitant]
     Dosage: TOTAL DAILY DOSE: 500 MG
     Route: 048
  14. METOPROLOL TARTRATE [Concomitant]
     Dosage: TOTAL DAILY DOSE: 25 MG
     Route: 048
  15. DIOVAN HCT [Concomitant]
     Route: 048
  16. 0.9 NORMAL SALINE [Concomitant]
     Route: 042
     Dates: start: 20071022

REACTIONS (4)
  - CONFUSIONAL STATE [None]
  - DELIRIUM [None]
  - LEUKOENCEPHALOPATHY [None]
  - URINARY TRACT INFECTION BACTERIAL [None]
